FAERS Safety Report 25241608 (Version 5)
Quarter: 2025Q3

REPORT INFORMATION
  Report Type: Spontaneous
  Country: JP (occurrence: JP)
  Receive Date: 20250426
  Receipt Date: 20250929
  Transmission Date: 20251021
  Serious: Yes (Life-Threatening, Hospitalization, Other)
  Sender: JAZZ
  Company Number: JP-JAZZ PHARMACEUTICALS-2025-JP-004588

PATIENT
  Age: 63 Year
  Sex: Female
  Weight: 42 kg

DRUGS (10)
  1. VYXEOS [Suspect]
     Active Substance: CYTARABINE\DAUNORUBICIN
     Indication: Acute myeloid leukaemia
     Dates: start: 20250205, end: 20250205
  2. VYXEOS [Suspect]
     Active Substance: CYTARABINE\DAUNORUBICIN
     Dates: start: 20250207, end: 20250207
  3. VYXEOS [Suspect]
     Active Substance: CYTARABINE\DAUNORUBICIN
     Dates: start: 20250209, end: 20250209
  4. VYXEOS [Suspect]
     Active Substance: CYTARABINE\DAUNORUBICIN
     Dates: start: 20250205, end: 20250210
  5. VYXEOS [Suspect]
     Active Substance: CYTARABINE\DAUNORUBICIN
  6. VYXEOS [Suspect]
     Active Substance: CYTARABINE\DAUNORUBICIN
     Dates: start: 20250408, end: 20250408
  7. VYXEOS [Suspect]
     Active Substance: CYTARABINE\DAUNORUBICIN
     Dates: start: 20250410, end: 20250410
  8. VYXEOS [Suspect]
     Active Substance: CYTARABINE\DAUNORUBICIN
     Dates: start: 20250530, end: 20250530
  9. VYXEOS [Suspect]
     Active Substance: CYTARABINE\DAUNORUBICIN
  10. VYXEOS [Suspect]
     Active Substance: CYTARABINE\DAUNORUBICIN
     Dates: start: 20250601, end: 20250601

REACTIONS (10)
  - Septic shock [Recovered/Resolved]
  - Febrile neutropenia [Recovering/Resolving]
  - Cholecystitis [Recovering/Resolving]
  - COVID-19 [Recovered/Resolved]
  - Tumour lysis syndrome [Recovering/Resolving]
  - Nausea [Recovering/Resolving]
  - Taste disorder [Not Recovered/Not Resolved]
  - Cytopenia [Recovering/Resolving]
  - Enteritis [Unknown]
  - Hepatic function abnormal [Recovered/Resolved]

NARRATIVE: CASE EVENT DATE: 20250101
